FAERS Safety Report 6607489 (Version 1)
Quarter: 2020Q3

REPORT INFORMATION
  Report Type: Report from Study
  Country: DO (occurrence: DO)
  Receive Date: 20080407
  Receipt Date: 20080407
  Transmission Date: 20201105
  Serious: Yes (Hospitalization)
  Sender: FDA-Public Use
  Company Number: DO-ROCHE-555506

PATIENT
  Age: 68 Year
  Sex: Female

DRUGS (1)
  1. IBANDRONIC ACID. [Suspect]
     Active Substance: IBANDRONIC ACID
     Indication: OSTEOPOROSIS
     Dosage: DOSING FREQUENCY: MONTHLY.
     Route: 048
     Dates: start: 20070827, end: 20080127

REACTIONS (2)
  - Vomiting [Recovered/Resolved]
  - Typhoid fever [Recovering/Resolving]

NARRATIVE: CASE EVENT DATE: 20080201
